FAERS Safety Report 8771746 (Version 6)
Quarter: 2012Q4

REPORT INFORMATION
  Report Type: 
  Country: US (occurrence: US)
  Receive Date: 20120905
  Receipt Date: 20121029
  Transmission Date: 20130627
  Serious: Yes (Other)
  Sender: FDA-Public Use
  Company Number: US-PFIZER INC-2012210106

PATIENT
  Age: 29 Year
  Sex: Female

DRUGS (28)
  1. IBUPROFEN [Suspect]
     Indication: PRODUCT USED FOR UNKNOWN INDICATION
     Dosage: 800 mg, 3x/day
  2. ZOLOFT [Suspect]
     Indication: DEPRESSION
     Dosage: 100
     Route: 048
     Dates: start: 2006, end: 2010
  3. ZOLOFT [Suspect]
     Indication: ILL-DEFINED DISORDER
  4. EFFEXOR [Suspect]
     Indication: AFFECTIVE DISORDER
     Dosage: UNK
     Route: 048
  5. VISTARIL [Suspect]
     Indication: AFFECTIVE DISORDER
     Dosage: 25 mg, 3x/day
     Route: 048
     Dates: start: 20061111
  6. VISTARIL [Suspect]
     Indication: ANXIETY
  7. TOPAMAX [Suspect]
     Indication: MIGRAINE
     Dosage: 50MG, UNK
     Route: 048
     Dates: start: 20060918, end: 20061218
  8. TOPAMAX [Suspect]
     Indication: CONVULSION
     Dosage: 100 mg to 300 mg daily
     Dates: start: 200509, end: 200902
  9. TOPAMAX [Suspect]
     Dosage: 150 mg,twice daily
  10. TRAZODONE [Suspect]
     Indication: DEPRESSION
     Dosage: 100 mg and 50 mg
     Route: 048
     Dates: start: 20051016
  11. TRAZODONE [Suspect]
     Dosage: 100 mg and 50 mg
     Dates: start: 20051129
  12. TRAZODONE [Suspect]
     Dosage: 100 mg and 50 mg
     Dates: start: 20060102
  13. TRAZODONE [Suspect]
     Dosage: 100 mg and 50 mg
     Dates: start: 20070823
  14. TRAZODONE [Suspect]
     Dosage: 100 mg and 50 mg
     Dates: start: 20070927
  15. TRAZODONE [Suspect]
     Dosage: 100 mg and 50 mg
     Dates: start: 20051015
  16. MIRTAZAPINE [Suspect]
     Indication: DEPRESSION
     Dosage: UNK
     Route: 048
     Dates: start: 20060531
  17. MIRTAZAPINE [Suspect]
     Dosage: UNK
     Dates: start: 20060722
  18. MIRTAZAPINE [Suspect]
     Dosage: UNK
     Dates: start: 20060904
  19. METFORMIN [Suspect]
     Indication: TYPE 2 DIABETES MELLITUS
     Route: 048
  20. COLACE [Suspect]
     Indication: PRODUCT USED FOR UNKNOWN INDICATION
  21. OXYTOCIN [Suspect]
     Indication: PRODUCT USED FOR UNKNOWN INDICATION
     Route: 042
  22. BRETHINE [Suspect]
     Indication: PRODUCT USED FOR UNKNOWN INDICATION
     Route: 058
  23. FENTANYL [Suspect]
     Indication: PRODUCT USED FOR UNKNOWN INDICATION
     Dosage: UNK
     Route: 008
  24. BUPIVACAINE [Suspect]
     Indication: PRODUCT USED FOR UNKNOWN INDICATION
     Dosage: UNK
     Route: 008
  25. OPTINATE [Concomitant]
     Indication: VITAMIN SUPPLEMENTATION
  26. FOLIC ACID [Concomitant]
     Indication: VITAMIN SUPPLEMENTATION
  27. PRENATAL VITAMINS [Concomitant]
     Route: 048
  28. FERROUS SULFATE [Concomitant]

REACTIONS (5)
  - Exposure during pregnancy [Recovered/Resolved]
  - Oligohydramnios [Unknown]
  - Epilepsy [Unknown]
  - Perineal injury [Unknown]
  - Emotional disorder [Unknown]
